FAERS Safety Report 7801409-6 (Version None)
Quarter: 2011Q4

REPORT INFORMATION
  Report Type: 
  Country: None (occurrence: None)
  Receive Date: 20111006
  Receipt Date: 20111006
  Transmission Date: 20120403
  Serious: Yes (Hospitalization)
  Sender: FDA-Public Use
  Company Number: None

PATIENT
  Age: 87 Year
  Sex: Female
  Weight: 69.6 kg

DRUGS (8)
  1. CLARIMAX [Concomitant]
  2. SYNTHROID [Concomitant]
  3. VIT B12 [Concomitant]
  4. BENAZEPRIL HYDROCHLORIDE [Concomitant]
  5. COUMADIN [Suspect]
     Indication: PULMONARY EMBOLISM
     Dosage: 6MG DAILY PO CHRONIC
     Route: 048
  6. NEXIUM [Concomitant]
  7. COUMADIN [Suspect]
     Indication: PULMONARY EMBOLISM
     Dosage: 1MG DAILY PO CHRONIC
     Route: 048
  8. TOPROL-XL [Concomitant]

REACTIONS (4)
  - HAEMOPTYSIS [None]
  - HAEMATURIA [None]
  - COAGULOPATHY [None]
  - INTERNATIONAL NORMALISED RATIO INCREASED [None]
